FAERS Safety Report 24398076 (Version 1)
Quarter: 2024Q4

REPORT INFORMATION
  Report Type: Spontaneous
  Country: US (occurrence: None)
  Receive Date: 20241003
  Receipt Date: 20241003
  Transmission Date: 20250115
  Serious: Yes (Hospitalization)
  Sender: Public
  Company Number: None

PATIENT
  Age: 49 Year
  Sex: Female
  Weight: 62.55 kg

DRUGS (5)
  1. PYRIDOXINE\TIRZEPATIDE [Suspect]
     Active Substance: PYRIDOXINE\TIRZEPATIDE
     Indication: Obesity
     Dosage: OTHER QUANTITY : 4 INJECTION(S);?OTHER FREQUENCY : 2.5 MG WEEKLY;?OTHER ROUTE : INJECTED UNDER SKIN;
     Route: 050
     Dates: start: 20240817, end: 20240915
  2. PHENTERMINE [Concomitant]
     Active Substance: PHENTERMINE\PHENTERMINE HYDROCHLORIDE
  3. IUD NOS [Concomitant]
     Active Substance: COPPER OR LEVONORGESTREL
  4. DOXYCYCLINE HYCLATE [Concomitant]
     Active Substance: DOXYCYCLINE HYCLATE
  5. NALTREXONE [Concomitant]
     Active Substance: NALTREXONE

REACTIONS (7)
  - Constipation [None]
  - Abdominal pain upper [None]
  - Abdominal pain lower [None]
  - Chromaturia [None]
  - Blood test abnormal [None]
  - Diverticulitis [None]
  - Diverticular perforation [None]

NARRATIVE: CASE EVENT DATE: 20240915
